FAERS Safety Report 24730425 (Version 2)
Quarter: 2025Q3

REPORT INFORMATION
  Report Type: Spontaneous
  Country: JP (occurrence: JP)
  Receive Date: 20241213
  Receipt Date: 20250802
  Transmission Date: 20251020
  Serious: Yes (Other)
  Sender: ALEXION PHARMACEUTICALS
  Company Number: JP-ASTRAZENECA-240139730_013120_P_1

PATIENT
  Age: 80 Year
  Sex: Male

DRUGS (3)
  1. DURVALUMAB [Suspect]
     Active Substance: DURVALUMAB
  2. DURVALUMAB [Suspect]
     Active Substance: DURVALUMAB
  3. ETOPOSIDE [Concomitant]
     Active Substance: ETOPOSIDE
     Indication: Small cell lung cancer
     Route: 065

REACTIONS (5)
  - Malaise [Unknown]
  - Oedema peripheral [Unknown]
  - Dyspnoea [Unknown]
  - Nephrotic syndrome [Unknown]
  - Henoch-Schonlein purpura [Unknown]
